FAERS Safety Report 7569809-X (Version None)
Quarter: 2011Q2

REPORT INFORMATION
  Report Type: 
  Country: None (occurrence: None)
  Receive Date: 20110620
  Receipt Date: 20110607
  Transmission Date: 20111010
  Serious: Yes (Death)
  Sender: FDA-Public Use
  Company Number: UTC-007722

PATIENT
  Age: 74 Year
  Sex: Female
  Weight: 73 kg

DRUGS (9)
  1. OXYGEN (OXYGEN) [Concomitant]
  2. TRACLEER [Concomitant]
  3. COZAAR [Concomitant]
  4. DIURETICS (DIURETICS) [Concomitant]
  5. REVATIO [Concomitant]
  6. ASPIRIN [Concomitant]
  7. REMODULIN [Suspect]
     Indication: PULMONARY ARTERIAL HYPERTENSION
     Dosage: 118.08 UG/KG (0.082 UG/KG,1 IN 1 MIN),SUBCUTANEOUS
     Route: 058
     Dates: start: 20080716
  8. REMODULIN [Suspect]
     Indication: SCLERODERMA
     Dosage: 118.08 UG/KG (0.082 UG/KG,1 IN 1 MIN),SUBCUTANEOUS
     Route: 058
     Dates: start: 20080716
  9. ALDACTONE [Concomitant]

REACTIONS (1)
  - DEATH [None]
